FAERS Safety Report 4625993-9 (Version None)
Quarter: 2005Q2

REPORT INFORMATION
  Report Type: 
  Country: None (occurrence: None)
  Receive Date: 20050404
  Receipt Date: 20050324
  Transmission Date: 20051028
  Serious: Yes (Hospitalization)
  Sender: FDA-Public Use
  Company Number: SE-JNJFOC-20050306153

PATIENT
  Age: 79 Year
  Sex: Male

DRUGS (5)
  1. REMINYL [Suspect]
     Route: 049
  2. REMINYL [Suspect]
     Indication: DRUG USE FOR UNKNOWN INDICATION
     Route: 049
  3. WARAN [Concomitant]
     Route: 049
  4. WARAN [Concomitant]
     Route: 049
  5. ANTIBIOTICS [Concomitant]
     Route: 065

REACTIONS (5)
  - BLOOD CREATININE INCREASED [None]
  - DEPRESSED LEVEL OF CONSCIOUSNESS [None]
  - HYPERKALAEMIA [None]
  - ILEUS PARALYTIC [None]
  - OLIGURIA [None]
